FAERS Safety Report 5907040-1 (Version None)
Quarter: 2008Q4

REPORT INFORMATION
  Report Type: 
  Country: None (occurrence: None)
  Receive Date: 20081003
  Receipt Date: 20080929
  Transmission Date: 20090506
  Serious: Yes (Hospitalization)
  Sender: FDA-Public Use
  Company Number: FR-BRISTOL-MYERS SQUIBB COMPANY-14354013

PATIENT
  Age: 75 Year
  Sex: Female

DRUGS (6)
  1. HYDREA [Suspect]
     Route: 048
     Dates: start: 20071201, end: 20080114
  2. PRAVASTATIN [Suspect]
     Dates: start: 20060101
  3. RAMIPRIL [Suspect]
     Route: 048
     Dates: start: 20050101
  4. CELIPROLOL [Suspect]
     Dosage: SEVERAL YEARS.
     Route: 048
     Dates: end: 20080313
  5. KARDEGIC [Suspect]
     Route: 048
     Dates: start: 20071201
  6. VASTAREL [Suspect]
     Dosage: SEVERAL YEARS.
     Route: 048
     Dates: end: 20080313

REACTIONS (1)
  - INTERSTITIAL LUNG DISEASE [None]
